FAERS Safety Report 7994250-5 (Version None)
Quarter: 2011Q4

REPORT INFORMATION
  Report Type: 
  Country: None (occurrence: None)
  Receive Date: 20111220
  Receipt Date: 20101117
  Transmission Date: 20120403
  Serious: No
  Sender: FDA-Public Use
  Company Number: US-GLAXOSMITHKLINE-A0893000A

PATIENT
  Sex: Female

DRUGS (3)
  1. BENADRYL [Concomitant]
  2. MECLIZINE [Concomitant]
  3. CEFUROXIME SODIUM [Suspect]
     Indication: ANTIBIOTIC PROPHYLAXIS
     Dosage: 1.5G PER DAY
     Route: 042
     Dates: start: 20101117, end: 20101117

REACTIONS (1)
  - URTICARIA [None]
